FAERS Safety Report 10056096 (Version 2)
Quarter: 2014Q2

REPORT INFORMATION
  Report Type: Report from Study
  Country: RU (occurrence: RU)
  Receive Date: 20140403
  Receipt Date: 20140422
  Transmission Date: 20141212
  Serious: No
  Sender: FDA-Public Use
  Company Number: RU-SA-2014SA037490

PATIENT
  Age: 66 Year
  Sex: Male

DRUGS (3)
  1. PLAVIX [Suspect]
     Indication: THROMBOSIS PROPHYLAXIS
     Route: 048
     Dates: start: 20140212
  2. WARFARIN [Suspect]
     Indication: PRODUCT USED FOR UNKNOWN INDICATION
     Route: 048
  3. VEROSPIRON [Concomitant]
     Dosage: STRENGTH: 25 MG
     Route: 048

REACTIONS (2)
  - Cough [Recovered/Resolved]
  - Faeces discoloured [Recovered/Resolved]
